FAERS Safety Report 16851101 (Version 1)
Quarter: 2019Q3

REPORT INFORMATION
  Report Type: Spontaneous
  Country: US (occurrence: US)
  Receive Date: 20190925
  Receipt Date: 20190925
  Transmission Date: 20191005
  Serious: No
  Sender: FDA-Public Use
  Company Number: US-ENDO PHARMACEUTICALS INC-2019-105744

PATIENT
  Age: 57 Year
  Sex: Female

DRUGS (1)
  1. QUESTRAN [Suspect]
     Active Substance: CHOLESTYRAMINE
     Indication: EXPOSURE TO MOULD
     Dosage: 9 G, BID
     Route: 065
     Dates: start: 20190422, end: 20190525

REACTIONS (3)
  - Off label use [Recovered/Resolved]
  - Abnormal faeces [Not Recovered/Not Resolved]
  - Urine odour abnormal [Not Recovered/Not Resolved]

NARRATIVE: CASE EVENT DATE: 20190422
